FAERS Safety Report 6635145-9 (Version None)
Quarter: 2010Q1

REPORT INFORMATION
  Report Type: 
  Country: None (occurrence: None)
  Receive Date: 20100315
  Receipt Date: 20100305
  Transmission Date: 20100710
  Serious: Yes (Other)
  Sender: FDA-Public Use
  Company Number: PHEH2010US02899

PATIENT
  Sex: Male

DRUGS (1)
  1. DIOVAN HCT [Suspect]
     Dosage: 1/2 PILL FOR ONE WEEK THEN INCREASED TO 1 PILL PER DAY
     Dates: start: 20091106, end: 20091128

REACTIONS (4)
  - ANXIETY [None]
  - HALLUCINATION [None]
  - HEADACHE [None]
  - VISUAL IMPAIRMENT [None]
